FAERS Safety Report 14916194 (Version 2)
Quarter: 2018Q2

REPORT INFORMATION
  Report Type: Spontaneous
  Country: FR (occurrence: FR)
  Receive Date: 20180518
  Receipt Date: 20180524
  Transmission Date: 20180711
  Serious: Yes (Hospitalization, Other)
  Sender: FDA-Public Use
  Company Number: FR-TAKEDA-2018TUS017331

PATIENT
  Age: 62 Year
  Sex: Male

DRUGS (9)
  1. ICLUSIG [Suspect]
     Active Substance: PONATINIB
     Dosage: UNK
     Route: 048
  2. ACTISKENAN [Concomitant]
     Active Substance: MORPHINE SULFATE
     Indication: PAIN
     Dosage: 10 MG, BID
     Route: 048
  3. PANTOPRAZOLE [Concomitant]
     Active Substance: PANTOPRAZOLE
     Indication: OESOPHAGITIS
     Dosage: 40 MG, QD
     Route: 048
  4. ICLUSIG [Suspect]
     Active Substance: PONATINIB
     Indication: ACUTE LYMPHOCYTIC LEUKAEMIA
     Dosage: 30 MG, QD
     Route: 048
     Dates: start: 201711, end: 20180212
  5. GLIMEPIRIDE. [Concomitant]
     Active Substance: GLIMEPIRIDE
     Indication: DIABETES MELLITUS
     Dosage: 1 MG, QD
     Route: 048
  6. JANUVIA [Concomitant]
     Active Substance: SITAGLIPTIN PHOSPHATE
     Indication: DIABETES MELLITUS
     Dosage: 100 MG, BID
     Route: 048
  7. LOXEN                              /00639802/ [Concomitant]
     Active Substance: NICARDIPINE HYDROCHLORIDE
     Indication: HYPERTENSION
     Dosage: 50 MG, BID
     Route: 048
  8. IMOVANE [Concomitant]
     Active Substance: ZOPICLONE
     Indication: INSOMNIA
     Dosage: 7.5 MG, QD
     Route: 048
  9. METFORMINE [Concomitant]
     Active Substance: METFORMIN HYDROCHLORIDE
     Indication: DIABETES MELLITUS
     Dosage: 1000 MG, BID
     Route: 048

REACTIONS (22)
  - Normocytic anaemia [Unknown]
  - Blood potassium increased [Unknown]
  - Decreased appetite [Unknown]
  - Gamma-glutamyltransferase increased [Unknown]
  - Cough [Unknown]
  - Dysuria [Unknown]
  - Blood albumin decreased [Unknown]
  - Abdominal pain lower [Unknown]
  - Cholestasis [Unknown]
  - Thrombocytopenia [Unknown]
  - Pulmonary mass [Unknown]
  - Dysphonia [Unknown]
  - Blood calcium decreased [Unknown]
  - Osteitis [Recovered/Resolved]
  - Vomiting [Unknown]
  - Blood phosphorus decreased [Unknown]
  - Blood alkaline phosphatase increased [Unknown]
  - General physical health deterioration [Unknown]
  - C-reactive protein increased [Unknown]
  - Pain in extremity [Unknown]
  - Suprapubic pain [Unknown]
  - Gastrooesophageal reflux disease [Unknown]

NARRATIVE: CASE EVENT DATE: 201801
